FAERS Safety Report 26112698 (Version 1)
Quarter: 2025Q4

REPORT INFORMATION
  Report Type: Spontaneous
  Country: EU (occurrence: EU)
  Receive Date: 20251202
  Receipt Date: 20251202
  Transmission Date: 20260118
  Serious: Yes (Death)
  Sender: MYLAN
  Company Number: EU-SUN PHARMACEUTICAL INDUSTRIES INC-2025RR-535626

PATIENT
  Age: 24 Year
  Sex: Female

DRUGS (16)
  1. GEMCITABINE [Suspect]
     Active Substance: GEMCITABINE
     Indication: Extraskeletal myxoid chondrosarcoma
     Dosage: UNK
  2. GEMCITABINE [Suspect]
     Active Substance: GEMCITABINE
     Dosage: UNK
  3. IRINOTECAN [Suspect]
     Active Substance: IRINOTECAN
     Indication: Extraskeletal myxoid chondrosarcoma
     Dosage: UNK
  4. CISPLATIN [Suspect]
     Active Substance: CISPLATIN
     Indication: Extraskeletal myxoid chondrosarcoma
     Dosage: UNK
  5. DOCETAXEL [Suspect]
     Active Substance: DOCETAXEL
     Indication: Extraskeletal myxoid chondrosarcoma
     Dosage: UNK
  6. DOCETAXEL [Suspect]
     Active Substance: DOCETAXEL
     Dosage: UNK
  7. DOXORUBICIN [Suspect]
     Active Substance: DOXORUBICIN
     Indication: Extraskeletal myxoid chondrosarcoma
     Dosage: UNK
  8. TEMOZOLOMIDE [Suspect]
     Active Substance: TEMOZOLOMIDE
     Indication: Extraskeletal myxoid chondrosarcoma
     Dosage: UNK
  9. VINCRISTINE [Suspect]
     Active Substance: VINCRISTINE
     Indication: Extraskeletal myxoid chondrosarcoma
     Dosage: UNK
  10. VINCRISTINE [Suspect]
     Active Substance: VINCRISTINE
     Dosage: UNK (7 CYCLES OF VAI)
  11. ACTINOMYCIN D [Suspect]
     Active Substance: DACTINOMYCIN
     Indication: Extraskeletal myxoid chondrosarcoma
     Dosage: UNK
  12. ACTINOMYCIN D [Suspect]
     Active Substance: DACTINOMYCIN
     Dosage: UNK (7 CYCLES OF VAI)
  13. IFOSFAMIDE [Suspect]
     Active Substance: IFOSFAMIDE
     Indication: Extraskeletal myxoid chondrosarcoma
     Dosage: UNK
  14. IFOSFAMIDE [Suspect]
     Active Substance: IFOSFAMIDE
     Dosage: UNK (7 CYCLES OF VAI)
  15. CYCLOPHOSPHAMIDE [Suspect]
     Active Substance: CYCLOPHOSPHAMIDE
     Indication: Extraskeletal myxoid chondrosarcoma
     Dosage: UNK
  16. ETOPOSIDE [Suspect]
     Active Substance: ETOPOSIDE
     Indication: Extraskeletal myxoid chondrosarcoma
     Dosage: UNK

REACTIONS (2)
  - Disease progression [Fatal]
  - Metastasis [Fatal]

NARRATIVE: CASE EVENT DATE: 20180101
